FAERS Safety Report 25906520 (Version 1)
Quarter: 2025Q4

REPORT INFORMATION
  Report Type: Spontaneous
  Country: US (occurrence: None)
  Receive Date: 20251009
  Receipt Date: 20251009
  Transmission Date: 20260118
  Serious: Yes (Other)
  Sender: FDA-CTU
  Company Number: None

PATIENT
  Age: 37 Year
  Sex: Female

DRUGS (4)
  1. TOPIRAMATE [Suspect]
     Active Substance: TOPIRAMATE
     Indication: Weight decreased
     Dosage: ?TWICE A DAY  ORAL
     Route: 048
     Dates: start: 20250811, end: 20250921
  2. BUPROPION [Suspect]
     Active Substance: BUPROPION
     Dates: start: 20250811, end: 20250921
  3. METFORMIN [Suspect]
     Active Substance: METFORMIN HYDROCHLORIDE
  4. ONDANSETRON [Suspect]
     Active Substance: ONDANSETRON

REACTIONS (1)
  - Dyspnoea [None]

NARRATIVE: CASE EVENT DATE: 20250921
